FAERS Safety Report 20673960 (Version 1)
Quarter: 2022Q2

REPORT INFORMATION
  Report Type: Spontaneous
  Country: CN (occurrence: CN)
  Receive Date: 20220405
  Receipt Date: 20220405
  Transmission Date: 20220721
  Serious: Yes (Hospitalization)
  Sender: FDA-Public Use
  Company Number: CN-PFIZER INC-202200468892

PATIENT
  Sex: Male

DRUGS (12)
  1. AVIBACTAM SODIUM\CEFTAZIDIME [Suspect]
     Active Substance: AVIBACTAM SODIUM\CEFTAZIDIME
     Indication: Anti-infective therapy
     Dosage: 0.94 G, QN (EVERY NIGHT)
     Route: 041
     Dates: start: 20220218, end: 20220222
  2. AVIBACTAM SODIUM\CEFTAZIDIME [Suspect]
     Active Substance: AVIBACTAM SODIUM\CEFTAZIDIME
     Indication: Pneumonia klebsiella
     Dosage: 1.25 G
     Route: 041
     Dates: start: 20220223, end: 20220302
  3. ATORVASTATIN CALCIUM [Concomitant]
     Active Substance: ATORVASTATIN CALCIUM
     Indication: Lipids increased
     Dosage: 20 MG
     Route: 048
     Dates: start: 20220130, end: 20220317
  4. PEI FEI KANG [Concomitant]
     Indication: Dysbiosis
     Dosage: 0.42 G
     Route: 048
     Dates: start: 20220130, end: 20220317
  5. JING CHANG LE [Concomitant]
     Indication: Dysbiosis
     Dosage: 0.5 G
     Route: 048
     Dates: start: 20220130, end: 20220317
  6. COMPOUND GLUTAMINE [ATRACTYLODES MACROCEPHALA, RHIZOMA;GLYCYRRHIZA SPP [Concomitant]
     Indication: Functional gastrointestinal disorder
     Dosage: 2 DF
     Route: 048
     Dates: start: 20220130, end: 20220317
  7. HYDROCHLOROTHIAZIDE [Concomitant]
     Active Substance: HYDROCHLOROTHIAZIDE
     Indication: Diuretic therapy
     Dosage: 25 MG
     Route: 048
     Dates: start: 20220130, end: 20220304
  8. INSULIN GLARGINE [Concomitant]
     Active Substance: INSULIN GLARGINE
     Indication: Blood glucose increased
     Dosage: 16 IU, 1X/DAY
     Route: 058
     Dates: start: 20220130, end: 20220317
  9. SHENG XUE BAO [Concomitant]
     Indication: Anaemia
     Dosage: 15 ML, 3X/DAY
     Route: 048
     Dates: start: 20220130, end: 20220317
  10. SHEN SHUAI NING [Concomitant]
     Indication: Renal impairment
     Dosage: 5 G, 3X/DAY
     Route: 048
     Dates: start: 20220130, end: 20220304
  11. PANCREATIN [Concomitant]
     Active Substance: PANCRELIPASE
     Indication: Dyspepsia
     Dosage: 0.15 G, 3X/DAY
     Route: 048
     Dates: start: 20220130, end: 20220304
  12. ALMAGATE [Concomitant]
     Active Substance: ALMAGATE
     Indication: Gastritis prophylaxis
     Dosage: 1.5 G, 3X/DAY
     Route: 048
     Dates: start: 20220130, end: 20220317

REACTIONS (1)
  - Platelet count decreased [Recovering/Resolving]

NARRATIVE: CASE EVENT DATE: 20220219
